FAERS Safety Report 16549752 (Version 1)
Quarter: 2019Q3

REPORT INFORMATION
  Report Type: Spontaneous
  Country: ES (occurrence: ES)
  Receive Date: 20190710
  Receipt Date: 20190710
  Transmission Date: 20191004
  Serious: Yes (Death, Hospitalization)
  Sender: FDA-Public Use
  Company Number: ES-BAXTER-2019BAX013074

PATIENT
  Age: 33 Year
  Sex: Female

DRUGS (1)
  1. GENOXAL [Suspect]
     Active Substance: CYCLOPHOSPHAMIDE
     Indication: BURKITT^S LYMPHOMA
     Dosage: 5 CYCLES
     Route: 042
     Dates: start: 20190401, end: 20190406

REACTIONS (2)
  - Acute kidney injury [Recovered/Resolved]
  - Bone marrow failure [Fatal]

NARRATIVE: CASE EVENT DATE: 20190407
